FAERS Safety Report 24797908 (Version 2)
Quarter: 2025Q1

REPORT INFORMATION
  Report Type: Spontaneous
  Country: US (occurrence: US)
  Receive Date: 20250102
  Receipt Date: 20250211
  Transmission Date: 20250409
  Serious: Yes (Hospitalization)
  Sender: SANOFI AVENTIS
  Company Number: US-SA-2025SA000183

PATIENT
  Age: 13 Year
  Sex: Male

DRUGS (5)
  1. ALPROLIX [Suspect]
     Active Substance: EFTRENONACOG ALFA
     Indication: Factor IX deficiency
     Dosage: INFUSE 6000 UNITS (5400-6600) SLOW IV PUSH EVERY OTHER DAY FOR 2 WEEKS FOR ACUTE BLEEDING EVENT
     Route: 042
     Dates: start: 202412
  2. ALPROLIX [Suspect]
     Active Substance: EFTRENONACOG ALFA
     Indication: Factor IX deficiency
     Dosage: INFUSE 6000 UNITS (5400-6600) SLOW IV PUSH EVERY OTHER DAY FOR 2 WEEKS FOR ACUTE BLEEDING EVENT
     Route: 042
     Dates: start: 202412
  3. ALPROLIX [Suspect]
     Active Substance: EFTRENONACOG ALFA
     Dosage: 6000 U, QD (DAILY FOR TWO WEEKS)
     Route: 042
  4. ALPROLIX [Suspect]
     Active Substance: EFTRENONACOG ALFA
     Dosage: 6000 U, QD (DAILY FOR TWO WEEKS)
     Route: 042
  5. SODIUM CHLORIDE [Concomitant]
     Active Substance: SODIUM CHLORIDE

REACTIONS (3)
  - Haemorrhage [Unknown]
  - Joint injury [Unknown]
  - Traumatic haemorrhage [Unknown]

NARRATIVE: CASE EVENT DATE: 20241221
